FAERS Safety Report 4586500-2 (Version None)
Quarter: 2005Q1

REPORT INFORMATION
  Report Type: 
  Country: None (occurrence: None)
  Receive Date: 20050214
  Receipt Date: 20050131
  Transmission Date: 20050727
  Serious: Yes (Death)
  Sender: FDA-Public Use
  Company Number: 2005022770

PATIENT
  Age: 36 Year
  Sex: Female

DRUGS (3)
  1. GLADEM (SERTRALINE) [Suspect]
     Indication: BORDERLINE PERSONALITY DISORDER
     Dosage: 150 MG (50 MG), ORAL
     Route: 048
  2. CARBAMAZEPINE [Concomitant]
  3. PROTHIPENDYL HYDROCHLORIDE (PROTHIPENDYL HYDROCHLORIDE) [Concomitant]

REACTIONS (3)
  - INJURY ASPHYXIATION [None]
  - POISONING [None]
  - TYPHUS [None]
